FAERS Safety Report 18178047 (Version 6)
Quarter: 2020Q4

REPORT INFORMATION
  Report Type: Spontaneous
  Country: US (occurrence: US)
  Receive Date: 20200821
  Receipt Date: 20201221
  Transmission Date: 20210113
  Serious: No
  Sender: FDA-Public Use
  Company Number: US-LUPIN PHARMACEUTICALS INC.-2020-04528

PATIENT
  Age: 66 Year
  Sex: Female
  Weight: 72.11 kg

DRUGS (8)
  1. AMINO ACIDS NOS [Concomitant]
     Active Substance: AMINO ACIDS, SOURCE UNSPECIFIED
     Indication: PRODUCT USED FOR UNKNOWN INDICATION
     Dosage: UNK
     Route: 048
  2. ASPARTATE MAGNESIUM [Concomitant]
     Indication: PRODUCT USED FOR UNKNOWN INDICATION
     Dosage: UNK
     Route: 048
  3. CROSCARMELLOSE [Concomitant]
     Indication: PRODUCT USED FOR UNKNOWN INDICATION
     Dosage: UNK
     Route: 048
  4. LEVOTHYROXINE SODIUM TABLETS, 50 MCG [Suspect]
     Active Substance: LEVOTHYROXINE SODIUM
     Indication: HYPOTHYROIDISM
     Dosage: UNK UNK, QD (2 TABLETS MONDAY-WEDNESDAY-FRIDAY, 1 TABLET TUESDAY, THURSDAY, SATURDAY AND SUNDAY)
     Route: 048
     Dates: start: 20200802, end: 20200817
  5. GLYCINE. [Concomitant]
     Active Substance: GLYCINE
     Indication: PRODUCT USED FOR UNKNOWN INDICATION
     Dosage: UNK
     Route: 048
  6. MAGNESIUM ASPARTATE [Concomitant]
     Active Substance: MAGNESIUM ASPARTATE
     Indication: PRODUCT USED FOR UNKNOWN INDICATION
     Dosage: UNK
     Route: 048
  7. VITAMIN D3 [Concomitant]
     Active Substance: CHOLECALCIFEROL
     Indication: PRODUCT USED FOR UNKNOWN INDICATION
     Dosage: UNK
     Route: 048
  8. GELATIN [Concomitant]
     Active Substance: GELATIN
     Indication: PRODUCT USED FOR UNKNOWN INDICATION
     Dosage: UNK
     Route: 048

REACTIONS (19)
  - Pollakiuria [Recovered/Resolved]
  - Attention deficit hyperactivity disorder [Unknown]
  - Emotional disorder [Not Recovered/Not Resolved]
  - Headache [Recovered/Resolved]
  - Tinnitus [Unknown]
  - Abdominal distension [Recovering/Resolving]
  - Insomnia [Recovering/Resolving]
  - Thirst [Recovered/Resolved]
  - Dehydration [Recovered/Resolved]
  - Balance disorder [Not Recovered/Not Resolved]
  - Dry skin [Unknown]
  - Palpitations [Unknown]
  - Weight decreased [Unknown]
  - Heart rate increased [Unknown]
  - Product taste abnormal [Unknown]
  - Fatigue [Recovering/Resolving]
  - Gingival disorder [Unknown]
  - Paraesthesia [Unknown]
  - Abnormal faeces [Recovered/Resolved]

NARRATIVE: CASE EVENT DATE: 20200802
